FAERS Safety Report 6435341-X (Version None)
Quarter: 2009Q4

REPORT INFORMATION
  Report Type: 
  Country: None (occurrence: None)
  Receive Date: 20091106
  Receipt Date: 20091023
  Transmission Date: 20100525
  Serious: Yes (Other)
  Sender: FDA-Public Use
  Company Number: 8053639

PATIENT
  Age: 61 Year
  Sex: Female
  Weight: 68.1 kg

DRUGS (3)
  1. KEPPRA [Suspect]
     Indication: CONVULSION
     Dates: start: 19980101, end: 20090823
  2. KEPPRA XR [Suspect]
     Indication: CONVULSION
     Dosage: 500 MG 2/D PO
     Route: 048
     Dates: start: 20090823, end: 20090823
  3. KEPPRA [Suspect]
     Indication: CONVULSION
     Dates: start: 20090824

REACTIONS (4)
  - GRAND MAL CONVULSION [None]
  - HALLUCINATION, VISUAL [None]
  - INJURY [None]
  - PRODUCT SUBSTITUTION ISSUE [None]
